FAERS Safety Report 14402394 (Version 1)
Quarter: 2018Q1

REPORT INFORMATION
  Report Type: Report from Study
  Country: JP (occurrence: JP)
  Receive Date: 20180117
  Receipt Date: 20180117
  Transmission Date: 20180509
  Serious: Yes (Other)
  Sender: FDA-Public Use
  Company Number: JP-MYLANLABS-2018M1004135

PATIENT

DRUGS (2)
  1. PANOBINOSTAT [Suspect]
     Active Substance: PANOBINOSTAT
     Indication: MYELODYSPLASTIC SYNDROME
     Dosage: 20MG ON DAYS 3 AND 5 IN THE FIRST WEEK; DAYS 8,10 AND 12 IN THE SECOND WEEK; AND DAY 15 IN THE TH...
     Route: 048
  2. AZACITIDINE. [Suspect]
     Active Substance: AZACITIDINE
     Indication: MYELODYSPLASTIC SYNDROME
     Dosage: 75 MG/M2 (GIVEN IN A SEVEN-DAY SCHEDULE).
     Route: 058

REACTIONS (1)
  - Lung infection [Unknown]
